FAERS Safety Report 11746347 (Version 1)
Quarter: 2015Q4

REPORT INFORMATION
  Report Type: Spontaneous
  Country: GB (occurrence: GB)
  Receive Date: 20151117
  Receipt Date: 20151117
  Transmission Date: 20160304
  Serious: Yes (Other)
  Sender: FDA-Public Use
  Company Number: GB-TEVA-607981ACC

PATIENT
  Age: 36 Year
  Sex: Female

DRUGS (1)
  1. DIAZEPAM. [Suspect]
     Active Substance: DIAZEPAM
     Route: 048
     Dates: start: 20150817

REACTIONS (2)
  - Sedation [Unknown]
  - Apnoeic attack [Unknown]

NARRATIVE: CASE EVENT DATE: 20150817
